FAERS Safety Report 13550468 (Version 1)
Quarter: 2017Q2

REPORT INFORMATION
  Report Type: Report from Study
  Country: MX (occurrence: MX)
  Receive Date: 20170516
  Receipt Date: 20170516
  Transmission Date: 20170830
  Serious: Yes (Other)
  Sender: FDA-Public Use
  Company Number: MX-BAYER-2017-087788

PATIENT
  Age: 32 Year
  Sex: Female

DRUGS (2)
  1. NEXAVAR [Suspect]
     Active Substance: SORAFENIB
     Indication: THYROID CANCER
     Dosage: UNK
     Route: 048
     Dates: start: 201508
  2. NEXAVAR [Suspect]
     Active Substance: SORAFENIB
     Indication: THYROID CANCER
     Dosage: 200 MG, QD
     Route: 048

REACTIONS (4)
  - Palmar-plantar erythrodysaesthesia syndrome [None]
  - Pain [None]
  - Intentional product misuse [Not Recovered/Not Resolved]
  - Gait disturbance [None]
